FAERS Safety Report 5075893-8 (Version None)
Quarter: 2006Q3

REPORT INFORMATION
  Report Type: 
  Country: None (occurrence: None)
  Receive Date: 20060809
  Receipt Date: 20060105
  Transmission Date: 20061208
  Serious: No
  Sender: FDA-Public Use
  Company Number: US-AMGEN-KDL164055

PATIENT
  Age: 66 Year
  Sex: Male

DRUGS (2)
  1. PROCRIT [Suspect]
     Indication: RENAL FAILURE CHRONIC
     Route: 058
     Dates: start: 20050701
  2. AVANDIA [Concomitant]

REACTIONS (1)
  - THERAPEUTIC RESPONSE DECREASED [None]
